FAERS Safety Report 18706670 (Version 1)
Quarter: 2021Q1

REPORT INFORMATION
  Report Type: Spontaneous
  Country: US (occurrence: US)
  Receive Date: 20210106
  Receipt Date: 20210106
  Transmission Date: 20210419
  Serious: Yes (Other)
  Sender: FDA-Public Use
  Company Number: US-PROCTER_AND_GAMBLE-GS20109296

PATIENT
  Age: 24 Year
  Sex: Female
  Weight: 64.4 kg

DRUGS (3)
  1. OLD SPICE WILDERNESS WITH LAVENDER [Suspect]
     Active Substance: ALUMINUM ZIRCONIUM TETRACHLOROHYDREX GLY
     Indication: HYPERHIDROSIS
     Dosage: 1 APPLIC, 2?3 /DAY
     Route: 061
     Dates: start: 20200823, end: 20200903
  2. BIRTH CONTROL PILLS [Concomitant]
     Active Substance: UNSPECIFIED INGREDIENT
  3. OLD SPICE WILDERNESS WITH LAVENDER [Suspect]
     Active Substance: ALUMINUM ZIRCONIUM TETRACHLOROHYDREX GLY
     Indication: PERSONAL HYGIENE

REACTIONS (20)
  - Cellulitis [Recovering/Resolving]
  - Rash pustular [Recovering/Resolving]
  - Scar [Not Recovered/Not Resolved]
  - Dermatitis [Recovering/Resolving]
  - Erythema [Recovering/Resolving]
  - Skin discomfort [Recovering/Resolving]
  - Skin lesion [Recovering/Resolving]
  - Skin hyperpigmentation [Not Recovered/Not Resolved]
  - Induration [Recovering/Resolving]
  - Pruritus [Recovering/Resolving]
  - Pustule [Recovering/Resolving]
  - Skin infection [Recovering/Resolving]
  - Skin warm [Recovering/Resolving]
  - Blood chloride increased [Unknown]
  - Skin injury [Recovering/Resolving]
  - Pain of skin [Recovering/Resolving]
  - Skin burning sensation [Recovering/Resolving]
  - Rash [Recovering/Resolving]
  - Blister [Recovering/Resolving]
  - Chemical burn of skin [Recovering/Resolving]

NARRATIVE: CASE EVENT DATE: 202009
